FAERS Safety Report 8142864-4 (Version None)
Quarter: 2012Q1

REPORT INFORMATION
  Report Type: 
  Country: None (occurrence: None)
  Receive Date: 20120216
  Receipt Date: 20111214
  Transmission Date: 20120608
  Serious: Yes (Other)
  Sender: FDA-Public Use
  Company Number: PHHY2011NL115434

PATIENT
  Age: 79 Year
  Sex: Female
  Weight: 68 kg

DRUGS (4)
  1. SANDOSTATIN LAR [Suspect]
     Indication: ACROMEGALY
     Dosage: 1X30 MG ONCE PER 4 WEEKS
     Dates: start: 20070404
  2. FOSINOPRIL SODIUM [Concomitant]
     Dosage: 1X10MG
  3. FUROSEMIDE [Concomitant]
     Dosage: 1X40MG
  4. AMIODARONE HCL [Concomitant]
     Dosage: 1X200MG

REACTIONS (6)
  - CARDIAC FAILURE [None]
  - ARTHRALGIA [None]
  - MUSCULOSKELETAL PAIN [None]
  - MUSCULOSKELETAL DISCOMFORT [None]
  - OEDEMA PERIPHERAL [None]
  - PAIN [None]
